FAERS Safety Report 6742520-0 (Version None)
Quarter: 2010Q2

REPORT INFORMATION
  Report Type: 
  Country: None (occurrence: None)
  Receive Date: 20100524
  Receipt Date: 20100222
  Transmission Date: 20101027
  Serious: Yes (Other)
  Sender: FDA-Public Use
  Company Number: DSA_42161_2009

PATIENT
  Age: 34 Year
  Sex: Male
  Weight: 72.5755 kg

DRUGS (1)
  1. APLENZIN [Suspect]
     Indication: MAJOR DEPRESSION
     Dosage: (522 MG QD ORAL)
     Route: 048
     Dates: start: 20091001, end: 20091201

REACTIONS (1)
  - CONVULSION [None]
